FAERS Safety Report 24902085 (Version 1)
Quarter: 2025Q1

REPORT INFORMATION
  Report Type: Spontaneous
  Country: SA (occurrence: SA)
  Receive Date: 20250129
  Receipt Date: 20250129
  Transmission Date: 20250409
  Serious: Yes (Death, Hospitalization)
  Sender: AMGEN
  Company Number: SA-AMGEN-SAUSP2025017005

PATIENT
  Age: 63 Year
  Sex: Male

DRUGS (4)
  1. REPATHA [Suspect]
     Active Substance: EVOLOCUMAB
     Indication: Type IIa hyperlipidaemia
     Dosage: 140 MILLIGRAM, Q2WK
     Route: 058
     Dates: start: 2019, end: 2019
  2. TELMISARTAN [Concomitant]
     Active Substance: TELMISARTAN
     Indication: Hypertension
     Dosage: 80 MILLIGRAM, QD
  3. ASPIRIN [Concomitant]
     Active Substance: ASPIRIN
     Indication: Coronary artery disease
     Dosage: 81 MILLIGRAM, QD
  4. BISOPROLOL [Concomitant]
     Active Substance: BISOPROLOL
     Indication: Cardiac failure
     Dosage: 5 MILLIGRAM, QD

REACTIONS (2)
  - Myocardial infarction [Fatal]
  - Therapy cessation [Unknown]

NARRATIVE: CASE EVENT DATE: 20190101
